FAERS Safety Report 5632272-X (Version None)
Quarter: 2008Q1

REPORT INFORMATION
  Report Type: 
  Country: None (occurrence: None)
  Receive Date: 20080212
  Receipt Date: 20080127
  Transmission Date: 20080703
  Serious: Yes (Other)
  Sender: FDA-Public Use
  Company Number: ACO_00417_2007

PATIENT
  Sex: Female
  Weight: 51 kg

DRUGS (17)
  1. TIZANIDINE HYDROCHLORIDE [Suspect]
     Indication: MUSCLE RIGIDITY
     Dosage: DF ORAL, 1 MG TID, ORAL, 0.3 MG FREQUENCY ORAL
     Route: 048
     Dates: end: 20070701
  2. TIZANIDINE HYDROCHLORIDE [Suspect]
     Indication: PAIN
     Dosage: DF ORAL, 1 MG TID, ORAL, 0.3 MG FREQUENCY ORAL
     Route: 048
     Dates: end: 20070701
  3. TIZANIDINE HYDROCHLORIDE [Suspect]
     Indication: PARKINSONISM
     Dosage: DF ORAL, 1 MG TID, ORAL, 0.3 MG FREQUENCY ORAL
     Route: 048
     Dates: end: 20070701
  4. TIZANIDINE HYDROCHLORIDE [Suspect]
     Indication: MUSCLE RIGIDITY
     Dosage: DF ORAL, 1 MG TID, ORAL, 0.3 MG FREQUENCY ORAL
     Route: 048
     Dates: start: 20071030, end: 20071215
  5. TIZANIDINE HYDROCHLORIDE [Suspect]
     Indication: PAIN
     Dosage: DF ORAL, 1 MG TID, ORAL, 0.3 MG FREQUENCY ORAL
     Route: 048
     Dates: start: 20071030, end: 20071215
  6. TIZANIDINE HYDROCHLORIDE [Suspect]
     Indication: PARKINSONISM
     Dosage: DF ORAL, 1 MG TID, ORAL, 0.3 MG FREQUENCY ORAL
     Route: 048
     Dates: start: 20071030, end: 20071215
  7. TIZANIDINE HYDROCHLORIDE [Suspect]
     Indication: MUSCLE RIGIDITY
     Dosage: DF ORAL, 1 MG TID, ORAL, 0.3 MG FREQUENCY ORAL
     Route: 048
     Dates: start: 20071030, end: 20071215
  8. TIZANIDINE HYDROCHLORIDE [Suspect]
     Indication: PAIN
     Dosage: DF ORAL, 1 MG TID, ORAL, 0.3 MG FREQUENCY ORAL
     Route: 048
     Dates: start: 20071030, end: 20071215
  9. TIZANIDINE HYDROCHLORIDE [Suspect]
     Indication: PARKINSONISM
     Dosage: DF ORAL, 1 MG TID, ORAL, 0.3 MG FREQUENCY ORAL
     Route: 048
     Dates: start: 20071030, end: 20071215
  10. VOGLIBOSE (VOGLIBOSE) [Suspect]
     Indication: DRUG USE FOR UNKNOWN INDICATION
     Dosage: 0.3 MG BID ORAL
     Route: 048
     Dates: start: 20071207, end: 20071212
  11. DIOVAN [Suspect]
     Indication: HYPERTENSION
     Dosage: 40 MG QD ORAL
     Route: 048
     Dates: start: 20071205, end: 20071217
  12. YM [Concomitant]
  13. CHOREITOU [Concomitant]
  14. FORSENID /00571901/ [Concomitant]
  15. NEUROTROPIN /01024301/ [Concomitant]
  16. MAGNESIUM OXIDE [Concomitant]
  17. LOXONIN /00890702/ [Concomitant]

REACTIONS (21)
  - ALANINE AMINOTRANSFERASE INCREASED [None]
  - ANOREXIA [None]
  - ASPARTATE AMINOTRANSFERASE INCREASED [None]
  - BEDRIDDEN [None]
  - BLOOD LACTATE DEHYDROGENASE INCREASED [None]
  - DECREASED APPETITE [None]
  - DIABETES MELLITUS [None]
  - DIARRHOEA [None]
  - DRUG INEFFECTIVE [None]
  - HEPATIC FUNCTION ABNORMAL [None]
  - HYPERTENSION [None]
  - HYPERTONIA [None]
  - HYPOTENSION [None]
  - MOBILITY DECREASED [None]
  - MUSCLE RIGIDITY [None]
  - MUSCULOSKELETAL STIFFNESS [None]
  - NAUSEA [None]
  - NECK PAIN [None]
  - PAIN [None]
  - TENOSYNOVITIS [None]
  - VOMITING [None]
